FAERS Safety Report 18018479 (Version 5)
Quarter: 2020Q4

REPORT INFORMATION
  Report Type: Report from Study
  Country: CA (occurrence: CA)
  Receive Date: 20200714
  Receipt Date: 20201015
  Transmission Date: 20210113
  Serious: Yes (Hospitalization, Other)
  Sender: FDA-Public Use
  Company Number: CA-GLAXOSMITHKLINE-CA2020AMR122881

PATIENT
  Age: 83 Year
  Sex: Female

DRUGS (2)
  1. NUCALA [Suspect]
     Active Substance: MEPOLIZUMAB
     Indication: ASTHMA
     Dosage: 100 MG, Z (MONTHLY)
     Route: 042
     Dates: start: 20200813
  2. SALBUTAMOL SULPHATE [Suspect]
     Active Substance: ALBUTEROL SULFATE
     Indication: ASTHMA
     Dosage: UNK
     Route: 042
     Dates: start: 20100101

REACTIONS (10)
  - Loss of personal independence in daily activities [Unknown]
  - Dyspnoea [Unknown]
  - Condition aggravated [Unknown]
  - Asthma [Unknown]
  - Arthritis [Unknown]
  - Lethargy [Unknown]
  - Lower respiratory tract infection [Unknown]
  - Tremor [Unknown]
  - Discomfort [Unknown]
  - Pneumonia [Unknown]

NARRATIVE: CASE EVENT DATE: 20200813
